FAERS Safety Report 4551714-4 (Version None)
Quarter: 2005Q1

REPORT INFORMATION
  Report Type: 
  Country: None (occurrence: None)
  Receive Date: 20050113
  Receipt Date: 20041229
  Transmission Date: 20050727
  Serious: Yes (Hospitalization)
  Sender: FDA-Public Use
  Company Number: FR-JNJFOC-20050101685

PATIENT
  Age: 38 Year
  Sex: Male

DRUGS (8)
  1. TOPALGIC [Suspect]
     Indication: DRUG USE FOR UNKNOWN INDICATION
     Route: 042
  2. LOVENOX [Suspect]
     Indication: DRUG USE FOR UNKNOWN INDICATION
     Route: 058
  3. SKENAN [Suspect]
     Indication: DRUG USE FOR UNKNOWN INDICATION
     Route: 049
  4. KALEORID [Concomitant]
     Route: 049
  5. ZYRTEC [Concomitant]
     Route: 049
  6. MOPRAL [Concomitant]
     Route: 049
  7. KETOPROFEN [Concomitant]
     Route: 042
  8. TRAMADOL HCL [Concomitant]
     Route: 049

REACTIONS (2)
  - CHOLESTASIS [None]
  - HYPOKALAEMIA [None]
